FAERS Safety Report 25248465 (Version 1)
Quarter: 2025Q2

REPORT INFORMATION
  Report Type: Spontaneous
  Country: US (occurrence: US)
  Receive Date: 20250429
  Receipt Date: 20250429
  Transmission Date: 20250717
  Serious: No
  Sender: TARO
  Company Number: US-TARO PHARMACEUTICALS USA INC.-2024TAR02570

PATIENT

DRUGS (2)
  1. FLUOROURACIL [Suspect]
     Active Substance: FLUOROURACIL
     Indication: Basosquamous carcinoma
     Dosage: OD , PEA SIZE ON THE END OF A Q-TIP, ONCE DAILY FOR 2 WEEKS
     Route: 061
     Dates: start: 20241030, end: 20241120
  2. FLUOROURACIL [Suspect]
     Active Substance: FLUOROURACIL
     Route: 061
     Dates: start: 20241030, end: 20241120

REACTIONS (2)
  - Off label use [Unknown]
  - Drug ineffective [Unknown]
